FAERS Safety Report 6824332-2 (Version None)
Quarter: 2010Q3

REPORT INFORMATION
  Report Type: 
  Country: None (occurrence: None)
  Receive Date: 20100708
  Receipt Date: 20100701
  Transmission Date: 20110219
  Serious: Yes (Other)
  Sender: FDA-Public Use
  Company Number: JP-ABBOTT-10P-087-0655121-00

PATIENT
  Age: 3 Year
  Sex: Male

DRUGS (1)
  1. CEFZON [Suspect]
     Indication: PNEUMONIA STREPTOCOCCAL
     Route: 048
     Dates: start: 20100612

REACTIONS (1)
  - NEPHRITIS [None]
